FAERS Safety Report 4597553-X (Version None)
Quarter: 2005Q1

REPORT INFORMATION
  Report Type: 
  Country: None (occurrence: None)
  Receive Date: 20050228
  Receipt Date: 20050228
  Transmission Date: 20050727
  Serious: Yes (Life-Threatening)
  Sender: FDA-Public Use
  Company Number: None

PATIENT
  Age: 22 Year
  Sex: Male
  Weight: 88 kg

DRUGS (9)
  1. DIPRIVAN [Suspect]
     Indication: SEDATION
     Dosage: 125 MCG/KG/MIN
     Dates: start: 20050222, end: 20050224
  2. LEVAQUIN [Concomitant]
  3. ROCEPHIN [Concomitant]
  4. ZITHROMAX [Concomitant]
  5. DOPAMINE [Concomitant]
  6. PROTONIX [Concomitant]
  7. LOVENOX [Concomitant]
  8. XOPENEX [Concomitant]
  9. MORPHINE [Concomitant]

REACTIONS (3)
  - ATRIOVENTRICULAR BLOCK [None]
  - CARDIAC ARREST [None]
  - DISCOMFORT [None]
